FAERS Safety Report 6156354-1 (Version None)
Quarter: 2009Q2

REPORT INFORMATION
  Report Type: 
  Country: None (occurrence: None)
  Receive Date: 20090415
  Receipt Date: 20090406
  Transmission Date: 20091009
  Serious: Yes (Other)
  Sender: FDA-Public Use
  Company Number: US-ABBOTT-09P-163-0566843-00

PATIENT
  Sex: Female
  Weight: 56.75 kg

DRUGS (2)
  1. ZEMPLAR [Suspect]
     Indication: HYPERPARATHYROIDISM
     Route: 048
     Dates: start: 20071001, end: 20081007
  2. ZEMPLAR [Suspect]
     Route: 048
     Dates: start: 20081201, end: 20090101

REACTIONS (8)
  - BACK PAIN [None]
  - BLADDER PROLAPSE [None]
  - MUSCLE SPASMS [None]
  - MUSCULAR WEAKNESS [None]
  - PAIN [None]
  - SPINAL COMPRESSION FRACTURE [None]
  - URINARY TRACT INFECTION [None]
  - UTERINE PROLAPSE [None]
